FAERS Safety Report 4625132-4 (Version None)
Quarter: 2005Q2

REPORT INFORMATION
  Report Type: 
  Country: None (occurrence: None)
  Receive Date: 20050401
  Receipt Date: 20050323
  Transmission Date: 20051028
  Serious: Yes (Hospitalization)
  Sender: FDA-Public Use
  Company Number: US-GLAXOSMITHKLINE-A0551610A

PATIENT
  Age: 67 Year
  Sex: Female
  Weight: 73 kg

DRUGS (6)
  1. TUMS [Suspect]
     Route: 048
     Dates: start: 20000101
  2. CRYSTALLINE VIT B12 INJ [Concomitant]
     Route: 042
  3. ATENOLOL [Concomitant]
     Indication: HEART RATE INCREASED
     Dates: end: 20030101
  4. H.PYLORI/PACK [Concomitant]
     Route: 048
     Dates: start: 20030101, end: 20030101
  5. NEXIUM [Concomitant]
     Route: 048
  6. PROTONIX [Concomitant]
     Route: 048

REACTIONS (3)
  - FEELING ABNORMAL [None]
  - HEADACHE [None]
  - SUBDURAL HAEMATOMA [None]
